FAERS Safety Report 18799290 (Version 3)
Quarter: 2021Q1

REPORT INFORMATION
  Report Type: Other
  Country: US (occurrence: US)
  Receive Date: 20210128
  Receipt Date: 20210316
  Transmission Date: 20210419
  Serious: Yes (Other)
  Sender: FDA-Public Use
  Company Number: US-ROCHE-2753141

PATIENT
  Sex: Female

DRUGS (11)
  1. CALCIUM [Concomitant]
     Active Substance: CALCIUM
     Route: 048
  2. ALLOPURINOL. [Concomitant]
     Active Substance: ALLOPURINOL
     Indication: GOUT
     Route: 048
  3. VITAMIN D3 [Concomitant]
     Active Substance: CHOLECALCIFEROL
     Indication: VITAMIN D DECREASED
     Route: 048
  4. OCREVUS [Suspect]
     Active Substance: OCRELIZUMAB
     Indication: PROGRESSIVE MULTIPLE SCLEROSIS
     Dosage: DATE OF TREATMENT: 17/APR/2019, 11/SEP/2019, 15/NOV/2019,
     Route: 042
     Dates: start: 2019
  5. IMODIUM [Concomitant]
     Active Substance: LOPERAMIDE HYDROCHLORIDE
     Indication: IRRITABLE BOWEL SYNDROME
     Route: 048
  6. ZINC. [Concomitant]
     Active Substance: ZINC
     Route: 048
  7. CRESTOR [Concomitant]
     Active Substance: ROSUVASTATIN CALCIUM
     Indication: BLOOD CHOLESTEROL INCREASED
     Route: 048
  8. SYNTHROID [Concomitant]
     Active Substance: LEVOTHYROXINE SODIUM
     Dosage: EVERY MORNING
     Route: 048
  9. MAGNESIUM [Concomitant]
     Active Substance: MAGNESIUM
     Indication: MUSCLE SPASMS
     Route: 048
  10. OCREVUS [Suspect]
     Active Substance: OCRELIZUMAB
     Indication: RELAPSING MULTIPLE SCLEROSIS
     Dosage: DATE OF TREATMENT; 26/SEP/2018.
     Route: 042
     Dates: start: 20180328
  11. VITAMIN C [Concomitant]
     Active Substance: ASCORBIC ACID
     Route: 048

REACTIONS (5)
  - Body height decreased [Not Recovered/Not Resolved]
  - Off label use [Unknown]
  - Urinary tract infection [Recovered/Resolved]
  - Back pain [Not Recovered/Not Resolved]
  - Intentional product use issue [Unknown]

NARRATIVE: CASE EVENT DATE: 2019
